FAERS Safety Report 9820468 (Version 2)
Quarter: 2014Q1

REPORT INFORMATION
  Report Type: Spontaneous
  Country: IT (occurrence: None)
  Receive Date: 20140114
  Receipt Date: 20140204
  Transmission Date: 20141002
  Serious: Yes (Hospitalization)
  Sender: FDA-Public Use
  Company Number: 2014AP000085

PATIENT
  Age: 74 Year
  Sex: Male

DRUGS (4)
  1. LEVOFLOXACIN [Suspect]
     Indication: BRONCHITIS
     Route: 048
     Dates: start: 20131125, end: 20131125
  2. CLOPIDOGREL W/ACETYLSALICYLIC ACID (CLOPIDOGREL W/ACETYLSALICYLIC ACID) [Concomitant]
  3. LASIX (FUROSEMIDE) [Concomitant]
  4. LANOXIN (DIGOXIN) [Concomitant]

REACTIONS (3)
  - Dermatitis [None]
  - Vasculitis [None]
  - Hypersensitivity vasculitis [None]
